FAERS Safety Report 10512117 (Version 1)
Quarter: 2014Q4

REPORT INFORMATION
  Report Type: Spontaneous
  Country: US (occurrence: US)
  Receive Date: 20141010
  Receipt Date: 20141010
  Transmission Date: 20150528
  Serious: Yes (Other)
  Sender: FDA-Public Use
  Company Number: US-ROXANE LABORATORIES, INC.-2014-RO-01554RO

PATIENT
  Sex: Female
  Weight: 113 kg

DRUGS (9)
  1. VITAMIN D3 [Concomitant]
     Active Substance: CHOLECALCIFEROL
     Route: 065
  2. METFORMIN [Concomitant]
     Active Substance: METFORMIN HYDROCHLORIDE
     Dosage: 2000 MG
     Route: 065
  3. CIPRO [Concomitant]
     Active Substance: CIPROFLOXACIN HYDROCHLORIDE
     Dosage: 1500 MG
     Route: 065
     Dates: start: 201406
  4. CITALOPRAM [Concomitant]
     Active Substance: CITALOPRAM HYDROBROMIDE
     Dosage: 20 MG
     Route: 065
     Dates: start: 201406
  5. PREDNISONE. [Suspect]
     Active Substance: PREDNISONE
     Indication: PRODUCT USED FOR UNKNOWN INDICATION
     Dosage: 60 MG
     Route: 065
     Dates: start: 201406
  6. DAPSONE. [Concomitant]
     Active Substance: DAPSONE
     Dosage: 100 MG
     Route: 065
     Dates: start: 201406
  7. TRAMADOL [Concomitant]
     Active Substance: TRAMADOL
     Indication: PAIN IN EXTREMITY
     Route: 065
     Dates: start: 201406
  8. CLOBETASOL [Suspect]
     Active Substance: CLOBETASOL
     Indication: PRODUCT USED FOR UNKNOWN INDICATION
     Route: 065
     Dates: start: 201406
  9. CALCIUM [Concomitant]
     Active Substance: CALCIUM
     Route: 065

REACTIONS (6)
  - Balance disorder [Unknown]
  - Blood glucose increased [Unknown]
  - Asthenia [Unknown]
  - Tremor [Unknown]
  - Impaired healing [Unknown]
  - Vision blurred [Unknown]
